FAERS Safety Report 4610283-0 (Version None)
Quarter: 2005Q1

REPORT INFORMATION
  Report Type: 
  Country: None (occurrence: None)
  Receive Date: 20050314
  Receipt Date: 20050228
  Transmission Date: 20050727
  Serious: Yes (Other)
  Sender: FDA-Public Use
  Company Number: 2005038683

PATIENT
  Age: 37 Year
  Sex: Female

DRUGS (11)
  1. TIKOSYN [Suspect]
     Indication: ILL-DEFINED DISORDER
     Dosage: (125 MG), ORAL
     Route: 048
     Dates: start: 20050222, end: 20050228
  2. DILANTIN [Suspect]
     Indication: ILL-DEFINED DISORDER
  3. NYSTATIN [Concomitant]
  4. DOCUSATE SODIUM (DOCUSATE SODIUM) [Concomitant]
  5. BACTRIM [Concomitant]
  6. VALGANCICLOVIR HYDROCHLORIDE (VALGANCICLOVIR HYDROCHLORIDE) [Concomitant]
  7. FAMOTIDINE [Concomitant]
  8. FUROSEMIDE (FUROSEMIDE) [Concomitant]
  9. PREDNISONE [Concomitant]
  10. MYCOPHENOLATE MOFETIL (MYCOPHENOLATE MOFETIL) [Concomitant]
  11. TACROLIMUS (TACROLIMUS) [Concomitant]

REACTIONS (3)
  - CHEST DISCOMFORT [None]
  - MEDICATION ERROR [None]
  - TENSION [None]
